FAERS Safety Report 18098123 (Version 2)
Quarter: 2020Q3

REPORT INFORMATION
  Report Type: Spontaneous
  Country: US (occurrence: US)
  Receive Date: 20200731
  Receipt Date: 20200922
  Transmission Date: 20201103
  Serious: Yes (Other)
  Sender: FDA-Public Use
  Company Number: US-JNJFOC-20200739240

PATIENT
  Sex: Male

DRUGS (6)
  1. XANAX [Suspect]
     Active Substance: ALPRAZOLAM
     Indication: BACK PAIN
     Route: 065
  2. OXYCONTIN [Suspect]
     Active Substance: OXYCODONE HYDROCHLORIDE
     Indication: BACK PAIN
     Route: 065
     Dates: start: 1998, end: 2012
  3. DEMEROL [Suspect]
     Active Substance: MEPERIDINE HYDROCHLORIDE
     Indication: BACK PAIN
     Dosage: 2 SHOT EVERY DOCTOR VISIT, EVERY 3 HOURS FOR 2 WEEKS
     Route: 042
     Dates: start: 2012
  4. DURAGESIC [Suspect]
     Active Substance: FENTANYL
     Indication: PAIN
     Dosage: EVERY 2 OR 3 DAYS
     Route: 062
  5. PERCOCET                           /00446701/ [Suspect]
     Active Substance: ACETAMINOPHEN\OXYCODONE HYDROCHLORIDE\OXYCODONE TEREPHTHALATE
     Indication: BACK PAIN
     Route: 065
     Dates: start: 1999
  6. OXYCODONE [Suspect]
     Active Substance: OXYCODONE
     Indication: PRODUCT USED FOR UNKNOWN INDICATION
     Route: 065

REACTIONS (9)
  - Drug dependence [Unknown]
  - Overdose [Unknown]
  - Seizure [Unknown]
  - Panic attack [Unknown]
  - Tinnitus [Unknown]
  - Vomiting [Unknown]
  - Suicidal ideation [Unknown]
  - Head injury [Unknown]
  - Pain [Unknown]

NARRATIVE: CASE EVENT DATE: 1998
